FAERS Safety Report 5012900-2 (Version None)
Quarter: 2006Q2

REPORT INFORMATION
  Report Type: 
  Country: None (occurrence: None)
  Receive Date: 20060525
  Receipt Date: 20060525
  Transmission Date: 20061013
  Serious: Yes (Hospitalization)
  Sender: FDA-Public Use
  Company Number: None

PATIENT
  Age: 57 Year
  Sex: Male
  Weight: 58.0604 kg

DRUGS (4)
  1. ERBITUX [Suspect]
     Indication: NEOPLASM MALIGNANT
     Dosage: 708 MG IV OVER 120 MIN; 450 MG IV OVER 60 MIN
     Route: 042
     Dates: start: 20060509
  2. ERBITUX [Suspect]
     Indication: NEOPLASM MALIGNANT
     Dosage: 708 MG IV OVER 120 MIN; 450 MG IV OVER 60 MIN
     Route: 042
     Dates: start: 20060516
  3. CISPLATIN [Suspect]
     Indication: NEOPLASM MALIGNANT
     Dosage: NOT DOSED AS OF A/E
  4. MORPHINE [Concomitant]

REACTIONS (10)
  - ASTHENIA [None]
  - DIZZINESS [None]
  - DUODENITIS [None]
  - HAEMORRHOIDS [None]
  - MICROCYTIC ANAEMIA [None]
  - NECK PAIN [None]
  - OESOPHAGITIS [None]
  - RECTAL HAEMORRHAGE [None]
  - SYNCOPE [None]
  - ULCER [None]
